FAERS Safety Report 4966743-6 (Version None)
Quarter: 2006Q1

REPORT INFORMATION
  Report Type: 
  Country: None (occurrence: None)
  Receive Date: 20060201
  Receipt Date: 20051219
  Transmission Date: 20060701
  Serious: No
  Sender: FDA-Public Use
  Company Number: 2005PV006095

PATIENT
  Age: 67 Year
  Sex: Female
  Weight: 131.5431 kg

DRUGS (12)
  1. BYETTA [Suspect]
     Indication: DIABETES MELLITUS NON-INSULIN-DEPENDENT
     Dosage: 5 MCG;BID;SC
     Route: 058
     Dates: start: 20051211, end: 20051201
  2. TRICOR [Concomitant]
  3. DIOVAN [Concomitant]
  4. DIOVAN HCT [Concomitant]
  5. METFORMIN [Concomitant]
  6. ATENOLOL [Concomitant]
  7. ALLOPURINOL [Concomitant]
  8. KLOR-CON [Concomitant]
  9. DEMADEX [Concomitant]
  10. SYNTHROID [Concomitant]
  11. IBUPROFEN [Concomitant]
  12. LEVAQUIN [Concomitant]

REACTIONS (4)
  - ABDOMINAL PAIN UPPER [None]
  - DECREASED APPETITE [None]
  - DISTURBANCE IN ATTENTION [None]
  - HEADACHE [None]
